FAERS Safety Report 6406243-X (Version None)
Quarter: 2009Q4

REPORT INFORMATION
  Report Type: 
  Country: None (occurrence: None)
  Receive Date: 20091019
  Receipt Date: 20091006
  Transmission Date: 20100525
  Serious: Yes (Other)
  Sender: FDA-Public Use
  Company Number: PHHY2009TR42072

PATIENT
  Age: 64 Year
  Sex: Female
  Weight: 57 kg

DRUGS (2)
  1. GLEEVEC [Suspect]
     Indication: GASTROINTESTINAL STROMAL TUMOUR
     Dosage: 400 MG, QD
  2. NEXIUM [Concomitant]

REACTIONS (4)
  - BRADYCARDIA [None]
  - EYE OEDEMA [None]
  - PERIORBITAL OEDEMA [None]
  - VOMITING [None]
